FAERS Safety Report 10405354 (Version 1)
Quarter: 2014Q3

REPORT INFORMATION
  Report Type: Spontaneous
  Country: DE (occurrence: DE)
  Receive Date: 20140825
  Receipt Date: 20140825
  Transmission Date: 20150326
  Serious: Yes (Hospitalization)
  Sender: FDA-Public Use
  Company Number: DE-JNJFOC-20140819139

PATIENT
  Sex: Male

DRUGS (10)
  1. MICARDIS [Concomitant]
     Active Substance: TELMISARTAN
     Dosage: 40 MG, OM
     Route: 065
  2. XARELTO [Suspect]
     Active Substance: RIVAROXABAN
     Indication: ATRIAL FIBRILLATION
     Route: 048
  3. DIGIMERCK [Concomitant]
     Active Substance: DIGITOXIN
     Dosage: 0.07 MG OM
     Route: 065
  4. SPIRONOLACTON [Concomitant]
     Active Substance: SPIRONOLACTONE
     Dosage: 0.05, OM
     Route: 065
  5. FURORESE [Concomitant]
     Active Substance: FUROSEMIDE
     Route: 065
  6. AQUAPHOR [Concomitant]
     Active Substance: PETROLATUM
     Route: 065
  7. ISDN [Concomitant]
     Active Substance: UNSPECIFIED INGREDIENT
     Route: 065
  8. XARELTO [Suspect]
     Active Substance: RIVAROXABAN
     Indication: CEREBROVASCULAR ACCIDENT PROPHYLAXIS
     Route: 048
  9. CARVEDILOL. [Concomitant]
     Active Substance: CARVEDILOL
     Route: 065
  10. ALLOPURINOL. [Concomitant]
     Active Substance: ALLOPURINOL
     Dosage: 100 MG, OM
     Route: 065

REACTIONS (4)
  - Dizziness [Unknown]
  - Haematochezia [Unknown]
  - Gastrointestinal angiodysplasia haemorrhagic [Unknown]
  - Fatigue [Unknown]
